FAERS Safety Report 10167868 (Version 1)
Quarter: 2014Q2

REPORT INFORMATION
  Report Type: Report from Study
  Country: TH (occurrence: TH)
  Receive Date: 20140512
  Receipt Date: 20140512
  Transmission Date: 20141212
  Serious: Yes (Hospitalization)
  Sender: FDA-Public Use
  Company Number: TH-US-EMD SERONO, INC.-7290852

PATIENT
  Sex: Female

DRUGS (2)
  1. SAIZEN [Suspect]
     Indication: GROWTH HORMONE DEFICIENCY
     Dates: start: 20121215
  2. SAIZEN [Suspect]
     Dates: start: 201404

REACTIONS (1)
  - Scoliosis [Recovered/Resolved]
